FAERS Safety Report 17904697 (Version 1)
Quarter: 2020Q2

REPORT INFORMATION
  Report Type: Spontaneous
  Country: US (occurrence: US)
  Receive Date: 20200616
  Receipt Date: 20200616
  Transmission Date: 20200714
  Serious: No
  Sender: FDA-Public Use
  Company Number: US-ROCHE-2478924

PATIENT
  Age: 54 Year
  Sex: Female

DRUGS (2)
  1. ACTEMRA [Suspect]
     Active Substance: TOCILIZUMAB
     Indication: IRIDOCYCLITIS
  2. ACTEMRA [Suspect]
     Active Substance: TOCILIZUMAB
     Indication: CROHN^S DISEASE
     Dosage: STRENGTH: 80MG/4ML
     Route: 042

REACTIONS (3)
  - No adverse event [Unknown]
  - Intentional product use issue [Unknown]
  - Off label use [Unknown]

NARRATIVE: CASE EVENT DATE: 20191118
